FAERS Safety Report 18459721 (Version 1)
Quarter: 2020Q4

REPORT INFORMATION
  Report Type: Report from Study
  Country: US (occurrence: US)
  Receive Date: 20201103
  Receipt Date: 20201103
  Transmission Date: 20210114
  Serious: Yes (Life-Threatening, Hospitalization, Other)
  Sender: FDA-Public Use
  Company Number: US-GILEAD-2018-0349445

PATIENT
  Age: 64 Year
  Sex: Female
  Weight: 46.9 kg

DRUGS (36)
  1. DEXAMETHASONE. [Concomitant]
     Active Substance: DEXAMETHASONE
     Indication: CHEMOTHERAPY
     Dosage: 20 MG, 3X/WEEK
     Route: 048
     Dates: start: 20180716, end: 20180718
  2. POLYETHYLENE GLYCOL [Concomitant]
     Active Substance: POLYETHYLENE GLYCOLS
     Indication: CONSTIPATION
     Dosage: UNK
     Dates: start: 20180628
  3. ONDANSETRON [Concomitant]
     Active Substance: ONDANSETRON
     Indication: NAUSEA
     Dosage: UNK
     Dates: start: 20180628, end: 20180724
  4. SARNA                              /01326901/ [Concomitant]
     Indication: RASH
     Dosage: UNK
     Dates: start: 20180702, end: 20180704
  5. DEXAMETHASONE. [Concomitant]
     Active Substance: DEXAMETHASONE
     Indication: PAIN
     Dosage: UNK
     Dates: start: 20180621, end: 20180627
  6. DEXAMETHASONE. [Concomitant]
     Active Substance: DEXAMETHASONE
     Dosage: UNK
     Dates: start: 201808
  7. CALCIUM + VITAMIN D                /00944201/ [Concomitant]
     Active Substance: CALCIUM CARBONATE\CHOLECALCIFEROL
     Indication: SUPPLEMENTATION THERAPY
     Dosage: UNK
     Dates: start: 20180619
  8. CHOLECALCIFEROL [Concomitant]
     Active Substance: CHOLECALCIFEROL
     Indication: SUPPLEMENTATION THERAPY
     Dosage: UNK
     Dates: start: 20180619
  9. CYANOCOBALAMIN. [Concomitant]
     Active Substance: CYANOCOBALAMIN
     Indication: SUPPLEMENTATION THERAPY
     Dosage: UNK
     Dates: start: 20180619
  10. SENNA                              /00142201/ [Concomitant]
     Active Substance: SENNA LEAF
     Indication: CONSTIPATION
     Dosage: UNK
     Dates: start: 20180627, end: 20180630
  11. LIDOCAINE. [Concomitant]
     Active Substance: LIDOCAINE
     Indication: LOCAL ANAESTHESIA
     Dosage: UNK
     Dates: start: 20180629, end: 20180718
  12. LIDOCAINE. [Concomitant]
     Active Substance: LIDOCAINE
     Indication: PAIN
  13. LEVETIRACETAM. [Concomitant]
     Active Substance: LEVETIRACETAM
     Indication: PROPHYLAXIS
     Dosage: UNK
     Dates: start: 20180727
  14. ACYCLOVIR                          /00587301/ [Concomitant]
     Active Substance: ACYCLOVIR
     Indication: INFECTION PROPHYLAXIS
     Dosage: UNK
     Dates: start: 20180619
  15. NAPROXEN. [Concomitant]
     Active Substance: NAPROXEN
     Indication: PAIN
     Dosage: UNK
     Dates: start: 20180619, end: 20180621
  16. POTASSIUM CHLORIDE. [Concomitant]
     Active Substance: POTASSIUM CHLORIDE
     Indication: SUPPLEMENTATION THERAPY
     Dosage: UNK
     Dates: start: 20180705
  17. PROCHLORPERAZINE. [Concomitant]
     Active Substance: PROCHLORPERAZINE
     Indication: PROPHYLAXIS OF NAUSEA AND VOMITING
     Dosage: UNK
     Dates: start: 20180723
  18. FLUDARABINE [Suspect]
     Active Substance: FLUDARABINE PHOSPHATE
     Indication: BONE MARROW CONDITIONING REGIMEN
     Dosage: 25 MG/M2, QD
     Route: 042
     Dates: start: 20180723, end: 20180725
  19. FLUTICASONE. [Concomitant]
     Active Substance: FLUTICASONE
     Indication: HYPERSENSITIVITY
     Dosage: UNK
     Dates: start: 20180619
  20. ALLOPURINOL. [Concomitant]
     Active Substance: ALLOPURINOL
     Indication: PROPHYLAXIS
     Dosage: UNK
     Dates: start: 20180709
  21. KTE-X19 [Suspect]
     Active Substance: AXICABTAGENE CILOLEUCEL
     Indication: ACUTE LYMPHOCYTIC LEUKAEMIA
     Dosage: 68 ML, ONCE
     Route: 042
     Dates: start: 20180727, end: 20180727
  22. LORAZEPAM. [Concomitant]
     Active Substance: LORAZEPAM
     Indication: NAUSEA
     Dosage: UNK
     Dates: start: 20180627, end: 20180728
  23. CYCLOPHOSPHAMIDE. [Suspect]
     Active Substance: CYCLOPHOSPHAMIDE
     Indication: BONE MARROW CONDITIONING REGIMEN
     Dosage: 900 MG/M2, ONCE
     Route: 042
     Dates: start: 20180725, end: 20180725
  24. CYTARABINE. [Concomitant]
     Active Substance: CYTARABINE
     Dosage: 40 MG, ONCE
     Route: 037
     Dates: start: 20180718, end: 20180718
  25. CAFFEINE. [Concomitant]
     Active Substance: CAFFEINE
     Indication: HEADACHE
     Dosage: UNK
     Dates: start: 20180619, end: 20180727
  26. HYDROCORTISONE. [Concomitant]
     Active Substance: HYDROCORTISONE
     Indication: RASH
  27. CALCIUM GLUCONATE. [Concomitant]
     Active Substance: CALCIUM GLUCONATE
     Indication: SUPPLEMENTATION THERAPY
     Dosage: UNK
     Dates: start: 20180630, end: 20180705
  28. LACRILUBE [Concomitant]
     Indication: DRY EYE
     Dosage: UNK
     Dates: start: 20180728, end: 20180728
  29. CYTARABINE. [Concomitant]
     Active Substance: CYTARABINE
     Indication: PROPHYLAXIS
     Dosage: 40 MG, ONCE
     Route: 037
     Dates: start: 20180702, end: 20180702
  30. VINCRISTINE [Concomitant]
     Active Substance: VINCRISTINE
     Indication: CHEMOTHERAPY
     Dosage: 2 MG, ONCE
     Route: 042
     Dates: start: 20180716, end: 20180716
  31. LATANOPROST. [Concomitant]
     Active Substance: LATANOPROST
     Indication: GLAUCOMA
     Dosage: UNK
     Dates: start: 20180619
  32. LEVOFLOXACIN. [Concomitant]
     Active Substance: LEVOFLOXACIN
     Indication: ANTIBIOTIC PROPHYLAXIS
     Dosage: UNK
     Dates: start: 20180723, end: 20180729
  33. HYDROCORTISONE. [Concomitant]
     Active Substance: HYDROCORTISONE
     Indication: PROCTALGIA
     Dosage: UNK
     Dates: start: 20180619
  34. DIPHENHYDRAMINE. [Concomitant]
     Active Substance: DIPHENHYDRAMINE
     Indication: PRURITUS
     Dosage: UNK
     Dates: start: 20180701, end: 20180727
  35. PLATELETS [Concomitant]
     Active Substance: HUMAN PLATELET, ALLOGENIC
     Indication: PLATELET COUNT DECREASED
     Dosage: UNK
     Dates: start: 20180717, end: 20180718
  36. RED BLOOD CELLS [Concomitant]
     Active Substance: HUMAN RED BLOOD CELL
     Indication: ANAEMIA
     Dosage: UNK
     Dates: start: 20180725, end: 20180731

REACTIONS (7)
  - Tumour pain [Recovered/Resolved]
  - Hypoxia [Recovered/Resolved]
  - Cytokine release syndrome [Recovered/Resolved]
  - Hypotension [Recovered/Resolved]
  - Hypoxia [Recovered/Resolved]
  - Pyrexia [Recovered/Resolved]
  - Cytokine release syndrome [Recovered/Resolved]

NARRATIVE: CASE EVENT DATE: 20180627
